FAERS Safety Report 7498990-6 (Version None)
Quarter: 2011Q2

REPORT INFORMATION
  Report Type: 
  Country: None (occurrence: None)
  Receive Date: 20110524
  Receipt Date: 20110503
  Transmission Date: 20111010
  Serious: Yes (Other)
  Sender: FDA-Public Use
  Company Number: US-BAYER-201027578NA

PATIENT
  Age: 21 Year
  Sex: Female
  Weight: 52 kg

DRUGS (9)
  1. TEGRETOL [Concomitant]
     Dates: start: 20070101
  2. TRAMADOL HCL [Concomitant]
     Indication: SLEEP DISORDER
     Dates: start: 20080101
  3. EPITOL [Concomitant]
     Indication: BIPOLAR DISORDER
     Dates: start: 20080101
  4. ANTIMIGRAINE PREPARATIONS [Concomitant]
     Indication: MIGRAINE
     Dates: start: 20080101
  5. ANTIMIGRAINE PREPARATIONS [Concomitant]
     Dates: start: 20080101
  6. YASMIN [Suspect]
     Indication: ORAL CONTRACEPTION
     Route: 048
     Dates: start: 20030101, end: 20050101
  7. NSAID'S [Concomitant]
     Dates: start: 20000101, end: 20100101
  8. YAZ [Suspect]
     Indication: PRODUCT USED FOR UNKNOWN INDICATION
  9. PROZAC [Concomitant]
     Indication: BIPOLAR DISORDER
     Dates: start: 20080101

REACTIONS (2)
  - CHOLECYSTECTOMY [None]
  - CHOLECYSTITIS CHRONIC [None]
